FAERS Safety Report 7395241-8 (Version None)
Quarter: 2011Q2

REPORT INFORMATION
  Report Type: 
  Country: None (occurrence: None)
  Receive Date: 20110405
  Receipt Date: 20110322
  Transmission Date: 20111010
  Serious: Yes (Hospitalization)
  Sender: FDA-Public Use
  Company Number: NL-MYLANLABS-2011S1006129

PATIENT
  Age: 27 Year
  Sex: Female

DRUGS (3)
  1. IBUPROFEN [Suspect]
     Indication: TENDONITIS
     Dates: start: 20110218
  2. NAPROXEN [Suspect]
     Indication: TENDONITIS
     Dates: start: 20110119
  3. DICLOFENAC [Suspect]
     Indication: TENDONITIS
     Dates: start: 20110112, end: 20110119

REACTIONS (2)
  - FATIGUE [None]
  - OPTIC NEURITIS [None]
